FAERS Safety Report 5054454-0 (Version None)
Quarter: 2006Q3

REPORT INFORMATION
  Report Type: 
  Country: None (occurrence: None)
  Receive Date: 20060713
  Receipt Date: 20060629
  Transmission Date: 20061208
  Serious: Yes (Other)
  Sender: FDA-Public Use
  Company Number: 35751

PATIENT
  Sex: Female

DRUGS (1)
  1. TRAVATAN [Suspect]

REACTIONS (4)
  - CORNEAL ABRASION [None]
  - DEVICE BREAKAGE [None]
  - PHARMACEUTICAL PRODUCT COMPLAINT [None]
  - RETINAL DETACHMENT [None]
